FAERS Safety Report 12214059 (Version 1)
Quarter: 2016Q1

REPORT INFORMATION
  Report Type: Spontaneous
  Country: US (occurrence: None)
  Receive Date: 20160325
  Receipt Date: 20160325
  Transmission Date: 20160526
  Serious: Yes (Life-Threatening)
  Sender: FDA-Public Use
  Company Number: None

PATIENT
  Age: 67 Year
  Sex: Male
  Weight: 134.9 kg

DRUGS (2)
  1. CATHETER [Suspect]
     Active Substance: DEVICE
     Indication: URINARY RETENTION
     Dates: start: 20150629, end: 20150629
  2. CEFTAZIDIME. [Suspect]
     Active Substance: CEFTAZIDIME
     Indication: SEPSIS
     Route: 042
     Dates: start: 20150629, end: 20150629

REACTIONS (11)
  - Rash [None]
  - Erythema [None]
  - Dyspnoea [None]
  - Angioedema [None]
  - Discomfort [None]
  - Urticaria [None]
  - Anaphylactic reaction [None]
  - Hypotension [None]
  - Tachypnoea [None]
  - Tachycardia [None]
  - Periorbital oedema [None]

NARRATIVE: CASE EVENT DATE: 20150629
